FAERS Safety Report 7902420-7 (Version None)
Quarter: 2011Q4

REPORT INFORMATION
  Report Type: 
  Country: None (occurrence: None)
  Receive Date: 20111108
  Receipt Date: 20111103
  Transmission Date: 20120403
  Serious: Yes (Other)
  Sender: FDA-Public Use
  Company Number: US-ABBOTT-11P-163-0849335-00

PATIENT
  Sex: Female
  Weight: 103.06 kg

DRUGS (26)
  1. CYMBALTA [Concomitant]
     Indication: FIBROMYALGIA
  2. AMLODIPINE BESYLATE [Concomitant]
     Indication: HYPERTENSION
     Route: 048
  3. HUMIRA [Suspect]
     Indication: PSORIASIS
     Dates: start: 20110708
  4. MULTIPLE CREAMS [Concomitant]
     Indication: PSORIASIS
  5. MIRTAZAPINE [Concomitant]
     Indication: PRODUCT USED FOR UNKNOWN INDICATION
     Dosage: AT BEDTIME
     Route: 048
     Dates: start: 20110425
  6. SINGULAIR [Concomitant]
     Indication: PRODUCT USED FOR UNKNOWN INDICATION
     Route: 048
     Dates: start: 20100812
  7. CRANBERRY [Concomitant]
     Indication: PRODUCT USED FOR UNKNOWN INDICATION
     Route: 048
     Dates: start: 20110208
  8. ONE-A-DAY ENERGY [Concomitant]
     Indication: PRODUCT USED FOR UNKNOWN INDICATION
     Route: 048
     Dates: start: 20110208
  9. INHALER SOLUTION [Concomitant]
     Indication: INHALATION THERAPY
     Route: 055
     Dates: start: 20101019
  10. CARISOPRODOL [Concomitant]
     Indication: PRODUCT USED FOR UNKNOWN INDICATION
     Route: 048
     Dates: start: 20100812
  11. VENTOLIN HFA [Concomitant]
     Indication: PRODUCT USED FOR UNKNOWN INDICATION
     Dosage: 108(90) BASE MCG/ACT 2 PUFF 4XDAY MOUTH
     Route: 055
     Dates: start: 20101019
  12. AMBIEN [Concomitant]
     Indication: INSOMNIA
     Dosage: AT NIGHT
     Route: 048
     Dates: start: 20110204
  13. MELOXICAM [Concomitant]
     Indication: FIBROMYALGIA
     Route: 048
     Dates: start: 20110425
  14. MOMETASONE FUROATE [Concomitant]
     Indication: PRODUCT USED FOR UNKNOWN INDICATION
     Dosage: SPARINGLY TO AFFECTED AREAS 1-2 DAILY
     Route: 061
     Dates: start: 20101129
  15. PROMETHAZINE HCL [Concomitant]
     Indication: NAUSEA
     Dosage: 1 EVERY 8 HOURS AS NEEDED
     Route: 054
     Dates: start: 20110305
  16. SOMA [Concomitant]
     Indication: PAIN
  17. NORMAL INHALER [Concomitant]
     Indication: ASTHMA
  18. CYMBALTA [Concomitant]
     Dosage: DELAYED RELEASE PARTICLES
     Route: 048
     Dates: start: 20110208
  19. PROMETHAZINE HCL [Concomitant]
     Indication: VOMITING
  20. CYMBALTA [Concomitant]
     Indication: DEPRESSION
     Dates: start: 20100902
  21. LASIX [Concomitant]
     Indication: HYPERTENSION
     Route: 048
     Dates: start: 20110801
  22. ACETAMINOPHEN AND HYDROCODONE BITARTRATE [Concomitant]
     Indication: PAIN
     Dosage: 5/500, PRN
     Route: 048
     Dates: start: 20100812
  23. ALBUTEROL SULFATE [Concomitant]
     Indication: PRODUCT USED FOR UNKNOWN INDICATION
     Dosage: 2.5MG/3ML, 0.083% NEBULIZATION 1 PER 4HR
     Route: 055
     Dates: start: 20110801
  24. LORAZEPAM [Concomitant]
     Indication: ANXIETY
     Route: 048
     Dates: start: 20100812
  25. LOSARTAN POTASSIUM [Concomitant]
     Indication: HYPERTENSION
     Route: 048
  26. CYMBALTA [Concomitant]
     Indication: PRODUCT USED FOR UNKNOWN INDICATION
     Dosage: DELAYED RELEASE PARTICLES
     Route: 048
     Dates: start: 20100902

REACTIONS (6)
  - BLOOD CHOLESTEROL INCREASED [None]
  - DEPRESSION [None]
  - DIABETES MELLITUS [None]
  - DRUG INEFFECTIVE [None]
  - CARDIAC MURMUR [None]
  - PSORIASIS [None]
